FAERS Safety Report 4948759-9 (Version None)
Quarter: 2006Q1

REPORT INFORMATION
  Report Type: 
  Country: None (occurrence: None)
  Receive Date: 20060321
  Receipt Date: 20060317
  Transmission Date: 20060701
  Serious: Yes (Hospitalization)
  Sender: FDA-Public Use
  Company Number: IT-RB-2956-2006

PATIENT
  Age: 24 Year
  Sex: Male

DRUGS (1)
  1. BUPRENORPHINE HCL [Suspect]
     Indication: DRUG DEPENDENCE
     Route: 060
     Dates: start: 20050601, end: 20051201

REACTIONS (3)
  - HEPATITIS CHOLESTATIC [None]
  - HEPATITIS TOXIC [None]
  - HERPES VIRUS INFECTION [None]
